FAERS Safety Report 7837864-5 (Version None)
Quarter: 2011Q4

REPORT INFORMATION
  Report Type: 
  Country: None (occurrence: None)
  Receive Date: 20111024
  Receipt Date: 20111014
  Transmission Date: 20120403
  Serious: Yes (Other)
  Sender: FDA-Public Use
  Company Number: US-ASTRAZENECA-2011SE62188

PATIENT
  Age: 47 Year
  Sex: Female

DRUGS (2)
  1. GNRH ANTAGONISTS [Suspect]
  2. ANASTROZOLE [Suspect]
     Indication: BREAST CANCER
     Route: 048

REACTIONS (1)
  - RETINAL HAEMORRHAGE [None]
